FAERS Safety Report 10331914 (Version 1)
Quarter: 2014Q3

REPORT INFORMATION
  Report Type: Spontaneous
  Country: US (occurrence: US)
  Receive Date: 20140722
  Receipt Date: 20140722
  Transmission Date: 20150326
  Serious: Yes (Hospitalization)
  Sender: FDA-Public Use
  Company Number: US-MYLANLABS-2014S1016388

PATIENT
  Age: 3 Year
  Sex: Female

DRUGS (2)
  1. LEVOTHYROXINE SODIUM. [Suspect]
     Active Substance: LEVOTHYROXINE SODIUM
     Indication: OFF LABEL USE
     Route: 048
  2. LEVOTHYROXINE SODIUM. [Suspect]
     Active Substance: LEVOTHYROXINE SODIUM
     Indication: OVERDOSE
     Route: 048

REACTIONS (7)
  - Mucosal dryness [Unknown]
  - Overdose [Recovered/Resolved]
  - Hyperthyroidism [Recovered/Resolved]
  - Dehydration [Recovered/Resolved]
  - Tachypnoea [Recovered/Resolved]
  - Pallor [Unknown]
  - Listless [Recovered/Resolved]
